FAERS Safety Report 7032979-6 (Version None)
Quarter: 2010Q4

REPORT INFORMATION
  Report Type: 
  Country: None (occurrence: None)
  Receive Date: 20101007
  Receipt Date: 20100910
  Transmission Date: 20110411
  Serious: Yes (Death, Hospitalization)
  Sender: FDA-Public Use
  Company Number: US-BRACCO-005131

PATIENT
  Sex: Male
  Weight: 91 kg

DRUGS (3)
  1. MULTIHANCE [Suspect]
     Indication: NUCLEAR MAGNETIC RESONANCE IMAGING BRAIN
     Route: 042
     Dates: start: 20100826, end: 20100826
  2. MULTIHANCE [Suspect]
     Indication: HEAD INJURY
     Route: 042
     Dates: start: 20100826, end: 20100826
  3. MULTIHANCE [Suspect]
     Indication: ARACHNOID CYST
     Route: 042
     Dates: start: 20100826, end: 20100826

REACTIONS (4)
  - GAIT DISTURBANCE [None]
  - HYPOTENSION [None]
  - RESPIRATORY ARREST [None]
  - SPEECH DISORDER [None]
